FAERS Safety Report 9158993 (Version 2)
Quarter: 2013Q3

REPORT INFORMATION
  Report Type: Spontaneous
  Country: US (occurrence: US)
  Receive Date: 20130313
  Receipt Date: 20130701
  Transmission Date: 20140515
  Serious: No
  Sender: FDA-Public Use
  Company Number: US-BIOGENIDEC-2013BI022015

PATIENT
  Age: 47 Year
  Sex: Female

DRUGS (3)
  1. TYSABRI [Suspect]
     Indication: MULTIPLE SCLEROSIS
     Route: 042
     Dates: start: 20120417, end: 20121206
  2. TYSABRI [Suspect]
     Indication: MULTIPLE SCLEROSIS
     Route: 042
  3. AVONEX [Concomitant]
     Indication: MULTIPLE SCLEROSIS
     Route: 030
     Dates: start: 20091118

REACTIONS (14)
  - Vein disorder [Unknown]
  - Blindness [Unknown]
  - Muscle spasms [Unknown]
  - Muscle tightness [Unknown]
  - Bladder disorder [Unknown]
  - Urinary incontinence [Unknown]
  - Mobility decreased [Unknown]
  - Anxiety [Unknown]
  - Eye pain [Unknown]
  - Back pain [Unknown]
  - Gait disturbance [Unknown]
  - General symptom [Unknown]
  - Confusional state [Unknown]
  - Headache [Unknown]
